FAERS Safety Report 8882369 (Version 1)
Quarter: 2012Q4

REPORT INFORMATION
  Report Type: 
  Country: ZA (occurrence: ZA)
  Receive Date: 20121102
  Receipt Date: 20121102
  Transmission Date: 20130627
  Serious: Yes (Death)
  Sender: FDA-Public Use
  Company Number: ZA-009507513-1210ZAF013584

PATIENT
  Age: 24 Week
  Sex: Male

DRUGS (1)
  1. CANCIDAS [Suspect]
     Indication: FUNGAL INFECTION
     Dosage: UNK
     Route: 042

REACTIONS (2)
  - Renal failure [Fatal]
  - Off label use [None]
